FAERS Safety Report 5591750-2 (Version None)
Quarter: 2008Q1

REPORT INFORMATION
  Report Type: 
  Country: None (occurrence: None)
  Receive Date: 20080115
  Receipt Date: 20080111
  Transmission Date: 20080703
  Serious: Yes (Hospitalization)
  Sender: FDA-Public Use
  Company Number: A0702750A

PATIENT
  Age: 71 Year
  Sex: Male

DRUGS (2)
  1. BACTROBAN [Suspect]
     Indication: SKIN DISCOLOURATION
     Dosage: 30G PER DAY
     Route: 061
     Dates: start: 20070701
  2. NO CONCURRENT MEDICATION [Concomitant]

REACTIONS (2)
  - DRUG INEFFECTIVE [None]
  - PRECANCEROUS CELLS PRESENT [None]
